FAERS Safety Report 6899233-4 (Version None)
Quarter: 2010Q3

REPORT INFORMATION
  Report Type: 
  Country: None (occurrence: None)
  Receive Date: 20100802
  Receipt Date: 20080318
  Transmission Date: 20110219
  Serious: No
  Sender: FDA-Public Use
  Company Number: US-PFIZER INC-2006031850

PATIENT
  Sex: Female
  Weight: 49.9 kg

DRUGS (4)
  1. LYRICA [Suspect]
     Indication: FACIAL PAIN
     Route: 048
     Dates: start: 20060216
  2. LYRICA [Suspect]
     Route: 048
     Dates: start: 20060201, end: 20060228
  3. PREDNISONE TAB [Suspect]
     Indication: HERPES ZOSTER
     Dosage: DAILY
     Route: 047
     Dates: start: 20060101, end: 20060228
  4. ZOVIRAX [Concomitant]
     Indication: HERPES ZOSTER
     Route: 065
     Dates: start: 20060101

REACTIONS (10)
  - BLINDNESS [None]
  - BLINDNESS TRANSIENT [None]
  - DRUG INEFFECTIVE [None]
  - DYSPNOEA [None]
  - FATIGUE [None]
  - HEADACHE [None]
  - INSOMNIA [None]
  - NAUSEA [None]
  - RESTLESSNESS [None]
  - VISION BLURRED [None]
